FAERS Safety Report 9005426 (Version 2)
Quarter: 2013Q1

REPORT INFORMATION
  Report Type: Spontaneous
  Country: US (occurrence: US)
  Receive Date: 20130108
  Receipt Date: 20130205
  Transmission Date: 20140127
  Serious: Yes (Hospitalization)
  Sender: FDA-Public Use
  Company Number: PHEH2013US000684

PATIENT
  Age: 59 Year
  Sex: Male
  Weight: 104.31 kg

DRUGS (1)
  1. ZOMETA [Suspect]
     Indication: METASTASES TO BONE
     Dosage: 4 MG, 4 WEEKS
     Route: 042
     Dates: start: 20120806

REACTIONS (1)
  - Pneumonia [Recovered/Resolved]
